FAERS Safety Report 18965498 (Version 1)
Quarter: 2021Q1

REPORT INFORMATION
  Report Type: Spontaneous
  Country: FR (occurrence: FR)
  Receive Date: 20210303
  Receipt Date: 20210303
  Transmission Date: 20210420
  Serious: Yes (Hospitalization)
  Sender: FDA-Public Use
  Company Number: FR-TEVA-2021-FR-1885123

PATIENT
  Age: 48 Year
  Sex: Male
  Weight: 164 kg

DRUGS (11)
  1. IRINOTECAN [Suspect]
     Active Substance: IRINOTECAN
     Indication: NEOPLASM MALIGNANT
     Dosage: 360 MG
     Route: 042
     Dates: start: 20210125
  2. FLUOROURACILE [Suspect]
     Active Substance: FLUOROURACIL
     Dosage: 2400MG/46H
     Route: 041
     Dates: start: 20210125
  3. MOVICOL [Concomitant]
     Active Substance: POLYETHYLENE GLYCOL 3350\POTASSIUM CHLORIDE\SODIUM BICARBONATE\SODIUM CHLORIDE
     Dosage: 2DF,IN SACHET
  4. TINZAPARINE SODIQUE ((MAMMIFERE/PORC/MUQUEUSE INTESTINALE)) [Concomitant]
     Active Substance: TINZAPARIN SODIUM
     Dosage: 18000IU
  5. FLUOROURACILE [Suspect]
     Active Substance: FLUOROURACIL
     Dosage: 2400MG/46H
     Route: 062
     Dates: start: 20210125
  6. PANTOPRAZOLE [Concomitant]
     Active Substance: PANTOPRAZOLE
     Dosage: 20MG
  7. OXALIPLATINE [Suspect]
     Active Substance: OXALIPLATIN
     Indication: NEOPLASM MALIGNANT
     Dosage: 170 MG
     Route: 042
     Dates: start: 20210125
  8. CALCIUM (LACTOBIONATE DE) [Suspect]
     Active Substance: CALCIUM LACTOBIONATE
     Indication: NEOPLASM MALIGNANT
     Dosage: 170 MG, UNIT DOSE: 400MG
     Route: 042
     Dates: start: 20210125
  9. AMIODARONE [Concomitant]
     Active Substance: AMIODARONE
     Dosage: 400MG
  10. FLUOROURACILE [Suspect]
     Active Substance: FLUOROURACIL
     Indication: NEOPLASM MALIGNANT
     Dosage: 2400MG/46H
     Route: 062
     Dates: start: 20210125
  11. BISOPROLOL (FUMARATE DE) [Concomitant]
     Active Substance: BISOPROLOL FUMARATE
     Dosage: 10MG

REACTIONS (1)
  - Agranulocytosis [Recovered/Resolved]

NARRATIVE: CASE EVENT DATE: 20210202
